FAERS Safety Report 5251941-7 (Version None)
Quarter: 2007Q1

REPORT INFORMATION
  Report Type: 
  Country: None (occurrence: None)
  Receive Date: 20070228
  Receipt Date: 20070221
  Transmission Date: 20070707
  Serious: Yes (Hospitalization)
  Sender: FDA-Public Use
  Company Number: US-MERCK-0702USA03993

PATIENT
  Age: 7 Week
  Sex: Female

DRUGS (7)
  1. DECADRON [Suspect]
     Indication: HISTIOCYTOSIS HAEMATOPHAGIC
     Route: 048
  2. DECADRON [Suspect]
     Indication: LYMPHOHISTIOCYTOSIS
     Route: 048
  3. ETOPOSIDE [Concomitant]
     Indication: HISTIOCYTOSIS HAEMATOPHAGIC
     Route: 065
  4. ETOPOSIDE [Concomitant]
     Indication: LYMPHOHISTIOCYTOSIS
     Route: 065
  5. CYCLOSPORINE [Suspect]
     Indication: HISTIOCYTOSIS HAEMATOPHAGIC
     Route: 065
  6. CYCLOSPORINE [Suspect]
     Indication: LYMPHOHISTIOCYTOSIS
     Route: 065
  7. METHOTREXATE [Concomitant]
     Route: 051

REACTIONS (3)
  - COOMBS POSITIVE HAEMOLYTIC ANAEMIA [None]
  - HISTIOCYTOSIS HAEMATOPHAGIC [None]
  - LYMPHOHISTIOCYTOSIS [None]
